FAERS Safety Report 13863919 (Version 2)
Quarter: 2017Q3

REPORT INFORMATION
  Report Type: Spontaneous
  Country: JP (occurrence: JP)
  Receive Date: 20170814
  Receipt Date: 20170821
  Transmission Date: 20171127
  Serious: Yes (Hospitalization)
  Sender: FDA-Public Use
  Company Number: JP-TEVA-2017-JP-002564J

PATIENT
  Age: 76 Year
  Sex: Female

DRUGS (1)
  1. PREDNISOLONE TABLETS 5MG [Suspect]
     Active Substance: PREDNISOLONE
     Indication: ASTHMA
     Dosage: 3 MILLIGRAM DAILY;
     Route: 048

REACTIONS (2)
  - Muscle abscess [Recovered/Resolved]
  - Bacteraemia [Recovered/Resolved]
